FAERS Safety Report 4611186-8 (Version None)
Quarter: 2005Q1

REPORT INFORMATION
  Report Type: 
  Country: None (occurrence: None)
  Receive Date: 20050317
  Receipt Date: 20050303
  Transmission Date: 20050727
  Serious: Yes (Other)
  Sender: FDA-Public Use
  Company Number: JP-MERCK-0503USA02183

PATIENT
  Age: 62 Year
  Sex: Female

DRUGS (7)
  1. ZOCOR [Suspect]
     Indication: HYPERLIPIDAEMIA
     Route: 048
     Dates: start: 20050218, end: 20050301
  2. FOSAMAX [Concomitant]
     Route: 048
     Dates: start: 20030101
  3. MECOBALAMIN [Concomitant]
     Route: 048
     Dates: start: 20030101
  4. ACTOS [Concomitant]
     Route: 048
     Dates: start: 20030101
  5. BASEN [Concomitant]
     Route: 048
     Dates: start: 20030101
  6. GASTER [Concomitant]
     Route: 048
     Dates: start: 20030101
  7. NORVASC [Concomitant]
     Route: 048
     Dates: start: 20030101

REACTIONS (1)
  - NEPHROLITHIASIS [None]
